FAERS Safety Report 23263452 (Version 1)
Quarter: 2023Q4

REPORT INFORMATION
  Report Type: Spontaneous
  Country: TH (occurrence: None)
  Receive Date: 20231204
  Receipt Date: 20231204
  Transmission Date: 20240110
  Serious: Yes (Disabling)
  Sender: FDA-Public Use
  Company Number: None

PATIENT
  Age: 52 Year
  Sex: Male
  Weight: 63 kg

DRUGS (6)
  1. LEVOFLOXACIN [Suspect]
     Active Substance: LEVOFLOXACIN
  2. MAGNESIUM [Concomitant]
     Active Substance: MAGNESIUM
  3. NAC [Concomitant]
  4. COENZYME Q10 [Concomitant]
     Active Substance: DIETARY SUPPLEMENT\UBIDECARENONE
  5. VITAMINS [Concomitant]
     Active Substance: VITAMINS
  6. COLLAGEN [Concomitant]
     Active Substance: COLLAGEN

REACTIONS (2)
  - Adverse drug reaction [None]
  - Tendon injury [None]

NARRATIVE: CASE EVENT DATE: 20230216
